FAERS Safety Report 11291580 (Version 1)
Quarter: 2015Q3

REPORT INFORMATION
  Report Type: Spontaneous
  Country: US (occurrence: US)
  Receive Date: 20150722
  Receipt Date: 20150722
  Transmission Date: 20151125
  Serious: Yes (Hospitalization, Other)
  Sender: FDA-Public Use
  Company Number: US-ASTRAZENECA-2015SE69980

PATIENT
  Sex: Female

DRUGS (1)
  1. BYETTA [Suspect]
     Active Substance: EXENATIDE
     Route: 058

REACTIONS (5)
  - Drug dose omission [Unknown]
  - Urinary tract infection [Not Recovered/Not Resolved]
  - Skin discolouration [Unknown]
  - Peripheral arterial occlusive disease [Unknown]
  - Wound [Unknown]

NARRATIVE: CASE EVENT DATE: 2015
